FAERS Safety Report 5374741-6 (Version None)
Quarter: 2007Q2

REPORT INFORMATION
  Report Type: 
  Country: None (occurrence: None)
  Receive Date: 20070625
  Receipt Date: 20070515
  Transmission Date: 20071010
  Serious: Yes (Hospitalization)
  Sender: FDA-Public Use
  Company Number: 06P-163-0352161-00

PATIENT
  Age: 51 Year
  Sex: Male
  Weight: 102 kg

DRUGS (13)
  1. HUMIRA [Suspect]
     Indication: RHEUMATOID ARTHRITIS
     Dosage: 40 MG, 1 IN 2 WK; SUBCUTANEOUS
     Route: 058
     Dates: start: 20030401, end: 20061101
  2. HUMIRA [Suspect]
     Indication: SPONDYLITIS
     Dosage: 40 MG, 1 IN 2 WK; SUBCUTANEOUS
     Route: 058
     Dates: start: 20030401, end: 20061101
  3. HUMIRA [Suspect]
     Indication: SYNOVITIS
     Dosage: 40 MG, 1 IN 2 WK; SUBCUTANEOUS
     Route: 058
     Dates: start: 20030401, end: 20061101
  4. METHOTREXATE SODIUM [Suspect]
     Indication: RHEUMATOID ARTHRITIS
     Dosage: 12.5 MG, 1 IN 1 WK;
     Dates: start: 20020806, end: 20061101
  5. LISINOPRIL [Concomitant]
  6. RISEDRONATE SODIUM [Concomitant]
  7. LANSOPRAZOLE [Concomitant]
  8. FOLIC ACID [Concomitant]
  9. PREDISONE [Concomitant]
  10. HYDROXYCHLOROQUINE PHOSPHATE [Concomitant]
  11. HYDROCHLOROTHIAZIDE [Concomitant]
  12. BACTRIM [Concomitant]
  13. PROCHLORPERAZINE EDISYLATE [Concomitant]

REACTIONS (4)
  - B-CELL LYMPHOMA [None]
  - BLOOD URINE PRESENT [None]
  - LEUKOPENIA [None]
  - RENAL CELL CARCINOMA STAGE UNSPECIFIED [None]
